FAERS Safety Report 8438162-1 (Version None)
Quarter: 2012Q2

REPORT INFORMATION
  Report Type: 
  Country: None (occurrence: None)
  Receive Date: 20120614
  Receipt Date: 20120607
  Transmission Date: 20120825
  Serious: Yes (Hospitalization)
  Sender: FDA-Public Use
  Company Number: SE-BAXTER-2012BAX007833

PATIENT
  Age: 71 Year
  Sex: Female

DRUGS (4)
  1. VINCRISTINE [Suspect]
  2. NEULASTA [Suspect]
     Route: 058
     Dates: start: 20120507
  3. CYCLOPHOSPHAMIDE [Suspect]
     Route: 065
  4. DOXORUBICIN HCL [Suspect]

REACTIONS (1)
  - CEREBRAL INFARCTION [None]
